FAERS Safety Report 21488007 (Version 3)
Quarter: 2022Q4

REPORT INFORMATION
  Report Type: Report from Study
  Country: US (occurrence: US)
  Receive Date: 20221020
  Receipt Date: 20221111
  Transmission Date: 20230113
  Serious: Yes (Hospitalization, Other)
  Sender: FDA-Public Use
  Company Number: US-SEATTLE GENETICS-2022SGN09689

PATIENT
  Age: 58 Year
  Sex: Female
  Weight: 60.28 kg

DRUGS (5)
  1. TUCATINIB [Suspect]
     Active Substance: TUCATINIB
     Indication: Invasive breast carcinoma
     Dosage: 300 MG, BID
     Route: 048
     Dates: start: 20220715, end: 20220901
  2. TUCATINIB [Suspect]
     Active Substance: TUCATINIB
     Indication: Invasive breast carcinoma
     Dosage: 300 MG, BID
     Route: 048
     Dates: start: 20220715, end: 20220901
  3. ADO-TRASTUZUMAB EMTANSINE [Suspect]
     Active Substance: ADO-TRASTUZUMAB EMTANSINE
     Indication: Invasive breast carcinoma
     Dosage: TOTAL DOSE 217 MG
     Dates: start: 20220623, end: 20220825
  4. VERZENIO [Concomitant]
     Active Substance: ABEMACICLIB
     Indication: Breast cancer
     Dosage: 150 MG, BID
     Dates: start: 20220923
  5. AZITHROMYCIN [Concomitant]
     Active Substance: AZITHROMYCIN
     Indication: Cough
     Dosage: 250 MG
     Dates: start: 20221003

REACTIONS (2)
  - Left ventricular dysfunction [Recovering/Resolving]
  - Dyspnoea [Recovered/Resolved]

NARRATIVE: CASE EVENT DATE: 20221007
